FAERS Safety Report 6046119-3 (Version None)
Quarter: 2009Q1

REPORT INFORMATION
  Report Type: 
  Country: None (occurrence: None)
  Receive Date: 20090121
  Receipt Date: 20090121
  Transmission Date: 20090719
  Serious: No
  Sender: FDA-Public Use
  Company Number: None

PATIENT
  Sex: Female
  Weight: 59.55 kg

DRUGS (17)
  1. LISINOPRIL [Suspect]
     Dosage: 10 MG TABLET QD ORAL
     Route: 048
     Dates: start: 20081211, end: 20090116
  2. ANTIOXIDANT [Concomitant]
  3. ATENOLOL [Concomitant]
  4. ASPIRIN [Concomitant]
  5. CALCIUM [Concomitant]
  6. CORTISPORIN [Concomitant]
  7. DICLOXACILLIN [Concomitant]
  8. FLAGYL [Concomitant]
  9. FLUCONAZOLE [Concomitant]
  10. LOVASTATIN [Concomitant]
  11. MVI (MULTIVITAMINS) [Concomitant]
  12. PANTOPRAZOLE [Concomitant]
  13. PAREGORIC [Concomitant]
  14. VITAMIN B6 (PYRIDOXINE HCL) [Concomitant]
  15. ASCORBIC ACID [Concomitant]
  16. XANAX [Concomitant]
  17. Z-PAK (AZITHROMYCIN 250 MG PACK) [Concomitant]

REACTIONS (1)
  - COUGH [None]
